FAERS Safety Report 7419824-1 (Version None)
Quarter: 2011Q2

REPORT INFORMATION
  Report Type: 
  Country: None (occurrence: None)
  Receive Date: 20110413
  Receipt Date: 20110413
  Transmission Date: 20111010
  Serious: Yes (Other)
  Sender: FDA-Public Use
  Company Number: None

PATIENT
  Age: 52 Year
  Sex: Female
  Weight: 94.8018 kg

DRUGS (1)
  1. DYSPORT [Suspect]

REACTIONS (2)
  - MIGRAINE [None]
  - DEPRESSED LEVEL OF CONSCIOUSNESS [None]
